FAERS Safety Report 12393909 (Version 1)
Quarter: 2016Q2

REPORT INFORMATION
  Report Type: Spontaneous
  Country: US (occurrence: None)
  Receive Date: 20160520
  Receipt Date: 20160520
  Transmission Date: 20160815
  Serious: Yes (Disabling, Other)
  Sender: FDA-Public Use
  Company Number: None

PATIENT
  Age: 67 Year
  Sex: Female
  Weight: 77.11 kg

DRUGS (20)
  1. COLBETASOL CREAM [Concomitant]
  2. CALCIUM [Concomitant]
     Active Substance: CALCIUM
  3. MELATONIN [Concomitant]
     Active Substance: MELATONIN
  4. DOXYCYCLINE HYCLATE, 100MG [Suspect]
     Active Substance: DOXYCYCLINE HYCLATE
     Indication: ARTHROPOD BITE
     Route: 048
     Dates: start: 20160415, end: 20160518
  5. ESCATALOPRAM [Concomitant]
  6. ANTIACIDS [Concomitant]
  7. ASPIRIN LOW DOSE [Concomitant]
     Active Substance: ASPIRIN
  8. MULTIPLE VITAMINS [Concomitant]
     Active Substance: VITAMINS
  9. VITAMIN D [Concomitant]
     Active Substance: CHOLECALCIFEROL
  10. BIOTIN [Concomitant]
     Active Substance: BIOTIN
  11. SYNTHESIS [Concomitant]
  12. DIAZEPAM. [Concomitant]
     Active Substance: DIAZEPAM
  13. TRAMADOL. [Concomitant]
     Active Substance: TRAMADOL
  14. PINE NUT OIL [Concomitant]
  15. TIZANIDINE. [Concomitant]
     Active Substance: TIZANIDINE
  16. RESTASIS [Concomitant]
     Active Substance: CYCLOSPORINE
  17. CERTRIZINE [Concomitant]
  18. TUMERIC [Concomitant]
     Active Substance: TURMERIC
  19. DEVIANT [Concomitant]
  20. DERMOL [Concomitant]
     Active Substance: BENZALKONIUM CHLORIDE\CHLORHEXIDINE HYDROCHLORIDE\ISOPROPYL MYRISTATE\PARAFFIN

REACTIONS (15)
  - Peripheral swelling [None]
  - Nausea [None]
  - Ocular hyperaemia [None]
  - Vomiting [None]
  - Eye pain [None]
  - Visual acuity reduced [None]
  - Vulvovaginal pruritus [None]
  - Paranasal sinus discomfort [None]
  - Headache [None]
  - Oropharyngeal pain [None]
  - Nasopharyngitis [None]
  - Hypoaesthesia [None]
  - Thirst [None]
  - Eyelid oedema [None]
  - Head discomfort [None]

NARRATIVE: CASE EVENT DATE: 20160518
